FAERS Safety Report 12843085 (Version 3)
Quarter: 2016Q4

REPORT INFORMATION
  Report Type: Report from Study
  Country: NG (occurrence: NG)
  Receive Date: 20161013
  Receipt Date: 20161021
  Transmission Date: 20170207
  Serious: Yes (Death, Hospitalization, Other)
  Sender: FDA-Public Use
  Company Number: PHHY2016NG140404

PATIENT
  Age: 61 Year
  Sex: Female
  Weight: 57 kg

DRUGS (3)
  1. GLIVEC [Suspect]
     Active Substance: IMATINIB MESYLATE
     Indication: CHRONIC MYELOID LEUKAEMIA
     Dosage: 600 MG, QD
     Route: 048
     Dates: start: 20061207
  2. DASATINIB [Suspect]
     Active Substance: DASATINIB
     Indication: PRODUCT USED FOR UNKNOWN INDICATION
     Route: 065
  3. GLIVEC [Suspect]
     Active Substance: IMATINIB MESYLATE
     Dosage: 400 MG, QD
     Route: 048
     Dates: end: 20080221

REACTIONS (7)
  - Anaemia [Unknown]
  - Peptic ulcer [Unknown]
  - Haemothorax [Unknown]
  - Chronic myeloid leukaemia transformation [Fatal]
  - Blast crisis in myelogenous leukaemia [Fatal]
  - Malaise [Unknown]
  - Thrombocytopenia [Fatal]

NARRATIVE: CASE EVENT DATE: 20080221
